FAERS Safety Report 16234623 (Version 2)
Quarter: 2019Q2

REPORT INFORMATION
  Report Type: Spontaneous
  Country: DE (occurrence: DE)
  Receive Date: 20190424
  Receipt Date: 20190429
  Transmission Date: 20190711
  Serious: Yes (Hospitalization, Disabling, Other)
  Sender: FDA-Public Use
  Company Number: DE-JNJFOC-20190433364

PATIENT
  Age: 39 Year
  Sex: Female

DRUGS (4)
  1. TRAMADOL HYDROCHLORIDE. [Suspect]
     Active Substance: TRAMADOL HYDROCHLORIDE
     Indication: MYOSCLEROSIS
     Route: 065
  2. DEXAMETHASONE. [Suspect]
     Active Substance: DEXAMETHASONE
     Indication: MYOSCLEROSIS
     Route: 065
  3. METAMIZOLE [Suspect]
     Active Substance: METAMIZOLE
     Indication: MYOSCLEROSIS
     Route: 065
  4. MEPIVACAINE [Suspect]
     Active Substance: MEPIVACAINE\MEPIVACAINE HYDROCHLORIDE
     Indication: MYOSCLEROSIS
     Route: 065

REACTIONS (12)
  - Sensory disturbance [Unknown]
  - Tinnitus [Not Recovered/Not Resolved]
  - Wrong technique in product usage process [Not Recovered/Not Resolved]
  - Loss of consciousness [Recovered/Resolved with Sequelae]
  - Deafness bilateral [Not Recovered/Not Resolved]
  - Depressed level of consciousness [Recovered/Resolved]
  - VIIIth nerve injury [Recovered/Resolved with Sequelae]
  - Deafness neurosensory [Not Recovered/Not Resolved]
  - Intentional product misuse [Unknown]
  - Hyperaesthesia [Not Recovered/Not Resolved]
  - Quadriplegia [Recovered/Resolved with Sequelae]
  - Ataxia [Recovered/Resolved with Sequelae]
